FAERS Safety Report 23577073 (Version 1)
Quarter: 2024Q1

REPORT INFORMATION
  Report Type: Report from Study
  Country: US (occurrence: US)
  Receive Date: 20240228
  Receipt Date: 20240228
  Transmission Date: 20240410
  Serious: Yes (Death)
  Sender: FDA-Public Use
  Company Number: US-ABBVIE-5656457

PATIENT
  Sex: Female

DRUGS (11)
  1. VENCLEXTA [Suspect]
     Active Substance: VENETOCLAX
     Indication: Chronic lymphocytic leukaemia
     Dosage: TAKE 1 TABLET BY MOUTH DAILY, STRENGTH 50 MILLIGRAMS
     Route: 048
  2. LASIX [Concomitant]
     Active Substance: FUROSEMIDE
     Indication: Product used for unknown indication
     Dosage: AS NEEDED
     Route: 048
     Dates: start: 20220907
  3. NESINA [Concomitant]
     Active Substance: ALOGLIPTIN BENZOATE
     Indication: Product used for unknown indication
     Route: 048
     Dates: start: 20221109
  4. LACTULOSE [Concomitant]
     Active Substance: LACTULOSE
     Indication: Constipation
     Dosage: 10 G/15 ML SOLUTION; DOSE 30 ML
     Route: 048
     Dates: start: 20220513
  5. ACETAMINOPHEN [Concomitant]
     Active Substance: ACETAMINOPHEN
     Indication: Product used for unknown indication
     Route: 048
     Dates: start: 20170712
  6. BASAGLAR [Concomitant]
     Active Substance: INSULIN GLARGINE
     Indication: Product used for unknown indication
     Dosage: INJECT 22 UNITS UNDER THE SKIN NIGHTLY FOR 180 DAYS; 100  UNITS/ ML INJ (PEN), KWIKPEN
     Route: 058
     Dates: start: 20230126, end: 20230725
  7. ELIQUIS [Concomitant]
     Active Substance: APIXABAN
     Indication: Product used for unknown indication
     Route: 048
     Dates: start: 20220802
  8. SYNTHROID [Concomitant]
     Active Substance: LEVOTHYROXINE SODIUM
     Indication: Product used for unknown indication
     Route: 048
     Dates: start: 20220824
  9. LANOXIN [Concomitant]
     Active Substance: DIGOXIN
     Indication: Product used for unknown indication
     Route: 048
     Dates: start: 20220907
  10. MEGACE [Concomitant]
     Active Substance: MEGESTROL ACETATE
     Indication: Product used for unknown indication
     Dosage: 40 MG/ML SUSPENSION , 300 ML
     Route: 048
     Dates: start: 20220609
  11. HUMALOG [Concomitant]
     Active Substance: INSULIN LISPRO
     Indication: Product used for unknown indication
     Dosage: USE AS PER SLIDING SCALE FOR MAX OF 10 UNITS DAILY; 100 UNITS/ ML INJ (PEN), KWIKPEN
     Dates: start: 20221025

REACTIONS (1)
  - Death [Fatal]
